FAERS Safety Report 5605282-6 (Version None)
Quarter: 2008Q1

REPORT INFORMATION
  Report Type: 
  Country: None (occurrence: None)
  Receive Date: 20080123
  Receipt Date: 20080123
  Transmission Date: 20080703
  Serious: Yes (Hospitalization)
  Sender: FDA-Public Use
  Company Number: None

PATIENT
  Sex: Female
  Weight: 110.5 kg

DRUGS (22)
  1. CETUXIMAB [Suspect]
     Indication: BREAST CANCER METASTATIC
     Dosage: 250MG/M2 IV WEEKLY
     Route: 042
     Dates: start: 20070726, end: 20080103
  2. CARBOPLATIN [Suspect]
     Indication: BREAST CANCER METASTATIC
     Dosage: CARBOPLATIN AUC 1.5 IV WKLY X3 AND 1 WK OFF
     Route: 042
     Dates: start: 20070726, end: 20080103
  3. TRAZODONE HYDROCHLORIDE [Concomitant]
  4. VESICARE [Concomitant]
  5. WELLBUTRIN SR [Concomitant]
  6. LEVAQUIN [Concomitant]
  7. CLINDAMYCIN HCL [Concomitant]
  8. MAGNESIUM [Concomitant]
  9. SODIUM SULFACETIMIDE TOPICAL [Concomitant]
  10. DOXYCYCLINE [Concomitant]
  11. LAXATIVE [Concomitant]
  12. EQUATE STOOL SOFTENER [Concomitant]
  13. BENADRYL CREAM/TABLET [Concomitant]
  14. ZOFRAN/COMPAZINE [Concomitant]
  15. DARVON [Concomitant]
  16. CARAFATE (SWISH SWALLOW) [Concomitant]
  17. AMBIEN CR [Concomitant]
  18. LEXAPRO [Concomitant]
  19. LYRICA [Concomitant]
  20. METADATE CD [Concomitant]
  21. PROTONIX [Concomitant]
  22. LISINOPRIL [Concomitant]

REACTIONS (3)
  - LOCALISED INFECTION [None]
  - PARONYCHIA [None]
  - STAPHYLOCOCCAL INFECTION [None]
